FAERS Safety Report 5120462-4 (Version None)
Quarter: 2006Q4

REPORT INFORMATION
  Report Type: 
  Country: None (occurrence: None)
  Receive Date: 20061002
  Receipt Date: 20060918
  Transmission Date: 20070319
  Serious: Yes (Death)
  Sender: FDA-Public Use
  Company Number: CA200609004764

PATIENT
  Age: 25 Year
  Sex: Female

DRUGS (2)
  1. FORTEO [Suspect]
     Indication: OSTEOPOROSIS
     Dosage: 20 UG, DAILY 1/D)
     Dates: start: 20051228
  2. FORTEO PEN (FORTEO PEN) PEN, DISPOSABLE [Concomitant]

REACTIONS (1)
  - ROAD TRAFFIC ACCIDENT [None]
